FAERS Safety Report 10191322 (Version 7)
Quarter: 2014Q3

REPORT INFORMATION
  Report Type: Report from Study
  Country: US (occurrence: US)
  Receive Date: 20140523
  Receipt Date: 20140918
  Transmission Date: 20150326
  Serious: Yes (Other)
  Sender: FDA-Public Use
  Company Number: US-SA-2014SA064981

PATIENT
  Sex: Female

DRUGS (3)
  1. TIZANIDINE [Concomitant]
     Active Substance: TIZANIDINE
  2. AUBAGIO [Suspect]
     Active Substance: TERIFLUNOMIDE
     Indication: MULTIPLE SCLEROSIS
     Route: 048
     Dates: start: 20140505, end: 20140909
  3. AUBAGIO [Suspect]
     Active Substance: TERIFLUNOMIDE
     Indication: MULTIPLE SCLEROSIS
     Route: 048
     Dates: start: 20140409

REACTIONS (7)
  - Menstrual disorder [Recovered/Resolved]
  - Somnolence [Unknown]
  - Uterine haemorrhage [Unknown]
  - Dysarthria [Not Recovered/Not Resolved]
  - Drug ineffective [Unknown]
  - Walking aid user [Not Recovered/Not Resolved]
  - Diarrhoea [Unknown]
